FAERS Safety Report 25170611 (Version 2)
Quarter: 2025Q2

REPORT INFORMATION
  Report Type: Spontaneous
  Country: CA (occurrence: CA)
  Receive Date: 20250408
  Receipt Date: 20250515
  Transmission Date: 20250717
  Serious: Yes (Hospitalization, Other)
  Sender: CELLTRION
  Company Number: CA-PFIZER INC-202500066812

PATIENT

DRUGS (2)
  1. INFLECTRA [Suspect]
     Active Substance: INFLIXIMAB-DYYB
     Indication: Crohn^s disease
     Route: 042
     Dates: start: 20250307
  2. IMURAN [Concomitant]
     Active Substance: AZATHIOPRINE
     Dates: start: 2017

REACTIONS (3)
  - Abdominal abscess [Unknown]
  - Condition aggravated [Unknown]
  - Treatment failure [Unknown]
